FAERS Safety Report 25109883 (Version 1)
Quarter: 2025Q1

REPORT INFORMATION
  Report Type: Spontaneous
  Country: DE (occurrence: DE)
  Receive Date: 20250324
  Receipt Date: 20250324
  Transmission Date: 20250409
  Serious: Yes (Hospitalization)
  Sender: ALKEM
  Company Number: DE-ALKEM LABORATORIES LIMITED-DE-ALKEM-2024-23364

PATIENT
  Age: 16 Year

DRUGS (20)
  1. ARIPIPRAZOLE [Suspect]
     Active Substance: ARIPIPRAZOLE
     Indication: Autism spectrum disorder
     Route: 065
  2. ARIPIPRAZOLE [Suspect]
     Active Substance: ARIPIPRAZOLE
     Indication: Intellectual disability
  3. ARIPIPRAZOLE [Suspect]
     Active Substance: ARIPIPRAZOLE
     Indication: Microcephaly
  4. ARIPIPRAZOLE [Suspect]
     Active Substance: ARIPIPRAZOLE
     Indication: Accommodation disorder
  5. QUETIAPINE FUMARATE [Suspect]
     Active Substance: QUETIAPINE FUMARATE
     Indication: Autism spectrum disorder
     Route: 065
  6. QUETIAPINE FUMARATE [Suspect]
     Active Substance: QUETIAPINE FUMARATE
     Indication: Intellectual disability
  7. QUETIAPINE FUMARATE [Suspect]
     Active Substance: QUETIAPINE FUMARATE
     Indication: Microcephaly
  8. QUETIAPINE FUMARATE [Suspect]
     Active Substance: QUETIAPINE FUMARATE
     Indication: Accommodation disorder
  9. MELATONIN [Suspect]
     Active Substance: MELATONIN
     Indication: Autism spectrum disorder
     Route: 065
  10. MELATONIN [Suspect]
     Active Substance: MELATONIN
     Indication: Intellectual disability
  11. MELATONIN [Suspect]
     Active Substance: MELATONIN
     Indication: Microcephaly
  12. MELATONIN [Suspect]
     Active Substance: MELATONIN
     Indication: Accommodation disorder
  13. MELPERONE [Suspect]
     Active Substance: MELPERONE
     Indication: Autism spectrum disorder
     Route: 065
  14. MELPERONE [Suspect]
     Active Substance: MELPERONE
     Indication: Intellectual disability
  15. MELPERONE [Suspect]
     Active Substance: MELPERONE
     Indication: Microcephaly
  16. MELPERONE [Suspect]
     Active Substance: MELPERONE
     Indication: Accommodation disorder
  17. LORAZEPAM [Suspect]
     Active Substance: LORAZEPAM
     Indication: Autism spectrum disorder
     Route: 065
  18. LORAZEPAM [Suspect]
     Active Substance: LORAZEPAM
     Indication: Intellectual disability
  19. LORAZEPAM [Suspect]
     Active Substance: LORAZEPAM
     Indication: Microcephaly
  20. LORAZEPAM [Suspect]
     Active Substance: LORAZEPAM
     Indication: Accommodation disorder

REACTIONS (1)
  - Extrapyramidal disorder [Unknown]
